FAERS Safety Report 9468159 (Version 2)
Quarter: 2013Q3

REPORT INFORMATION
  Report Type: Spontaneous
  Country: CN (occurrence: CN)
  Receive Date: 20130821
  Receipt Date: 20130905
  Transmission Date: 20140515
  Serious: Yes (Other)
  Sender: FDA-Public Use
  Company Number: CN-SANOFI-AVENTIS-2013SA082156

PATIENT
  Age: 65 Year
  Sex: Male

DRUGS (1)
  1. COAPROVEL [Suspect]
     Indication: HYPERTENSION
     Dosage: STRENGTH: 150 MG/12.5 MG
     Route: 048
     Dates: start: 201302

REACTIONS (1)
  - Retinal haemorrhage [Recovered/Resolved]
